FAERS Safety Report 23091466 (Version 4)
Quarter: 2023Q4

REPORT INFORMATION
  Report Type: Report from Study
  Country: CN (occurrence: CN)
  Receive Date: 20231020
  Receipt Date: 20231128
  Transmission Date: 20240110
  Serious: Yes (Life-Threatening)
  Sender: FDA-Public Use
  Company Number: CN-ZENITH EPIGENETICS LTD.-2023ZEN000100

PATIENT
  Age: 56 Year
  Sex: Female
  Weight: 57 kg

DRUGS (6)
  1. TALAZOPARIB [Suspect]
     Active Substance: TALAZOPARIB
     Indication: Triple negative breast cancer
     Dosage: 0.75 MILLIGRAM, QD
     Route: 048
     Dates: start: 20230928, end: 20231012
  2. ZEN-003694 [Suspect]
     Active Substance: ZEN-003694
     Indication: Triple negative breast cancer
     Dosage: 48 MILLIGRAM, QD (CAPSULE)
     Route: 048
     Dates: start: 20230928, end: 20231012
  3. PALONOSETRON HYDROCHLORIDE [Concomitant]
     Active Substance: PALONOSETRON HYDROCHLORIDE
     Indication: Prophylaxis of nausea and vomiting
     Dosage: 0.5 MG, 1X/DAY
     Route: 048
     Dates: start: 20230928, end: 20231003
  4. PALONOSETRON HYDROCHLORIDE [Concomitant]
     Active Substance: PALONOSETRON HYDROCHLORIDE
     Dosage: UNK
     Dates: start: 20231006, end: 20231026
  5. LEVOFLOXACIN [Concomitant]
     Active Substance: LEVOFLOXACIN
     Indication: Conjunctivitis
     Dosage: 1 DROP, EVERY 2 HOURS (BOTH EYES)
     Route: 061
     Dates: start: 20231011, end: 20231023
  6. GANCICLOVIR SODIUM [Concomitant]
     Active Substance: GANCICLOVIR SODIUM
     Indication: Conjunctivitis
     Dosage: 1 DROP, EVERY 2 HOURS (BOTH EYES)
     Route: 061
     Dates: start: 20231011, end: 20231023

REACTIONS (1)
  - Platelet count decreased [Recovered/Resolved]

NARRATIVE: CASE EVENT DATE: 20231010
